FAERS Safety Report 6375505-7 (Version None)
Quarter: 2009Q3

REPORT INFORMATION
  Report Type: 
  Country: None (occurrence: None)
  Receive Date: 20090924
  Receipt Date: 20090923
  Transmission Date: 20100115
  Serious: No
  Sender: FDA-Public Use
  Company Number: US-ROXANE LABORATORIES, INC.-2009-RO-00925RO

PATIENT
  Sex: Male

DRUGS (6)
  1. LITHIUM CARBONATE [Suspect]
     Indication: SEASONAL AFFECTIVE DISORDER
     Dosage: 300 MG
  2. NORTRIPTYLINE HCL [Concomitant]
     Dosage: 275 MG
  3. DOXEPIN HCL [Concomitant]
     Dosage: 10 MG
  4. LISINOPRIL [Concomitant]
     Indication: HYPERTENSION
  5. KLONOPIN [Concomitant]
     Indication: PANIC ATTACK
     Dosage: 0.5 MG
  6. CLARITIN [Concomitant]
     Indication: HYPERSENSITIVITY

REACTIONS (4)
  - DRUG INEFFECTIVE [None]
  - INSOMNIA [None]
  - MOOD SWINGS [None]
  - TINNITUS [None]
